FAERS Safety Report 14250819 (Version 1)
Quarter: 2017Q4

REPORT INFORMATION
  Report Type: Spontaneous
  Country: US (occurrence: US)
  Receive Date: 20171205
  Receipt Date: 20171205
  Transmission Date: 20180321
  Serious: Yes (Other)
  Sender: FDA-Public Use
  Company Number: US-PFIZER INC-2017518377

PATIENT
  Age: 18 Year
  Sex: Female
  Weight: 102.6 kg

DRUGS (6)
  1. ZARONTIN [Suspect]
     Active Substance: ETHOSUXIMIDE
     Dosage: 250 MG, 2X/DAY
     Route: 048
  2. LEXAPRO [Concomitant]
     Active Substance: ESCITALOPRAM OXALATE
     Indication: ANXIETY
     Dosage: 20MG DAILY AT NIGHT
     Route: 048
     Dates: start: 2015
  3. ONFI [Concomitant]
     Active Substance: CLOBAZAM
     Indication: SEIZURE
     Dosage: 60 MG, DAILY (TWO TABLETS IN THE MORNING AND FOUR TABLETS AT NIGHT)
     Route: 048
  4. CLONAZEPAM. [Concomitant]
     Active Substance: CLONAZEPAM
     Indication: GENERALISED TONIC-CLONIC SEIZURE
     Dosage: 1MG TABLETS AS NEEDED
     Route: 060
  5. ZARONTIN [Suspect]
     Active Substance: ETHOSUXIMIDE
     Indication: SEIZURE
     Dosage: 1250 MG, DAILY
     Dates: end: 2016
  6. LORAZEPAM. [Concomitant]
     Active Substance: LORAZEPAM
     Indication: ANXIETY
     Dosage: 1MG AS NEEDED
     Route: 048

REACTIONS (4)
  - Metabolic disorder [Unknown]
  - Weight increased [Unknown]
  - Amenorrhoea [Unknown]
  - Generalised tonic-clonic seizure [Unknown]

NARRATIVE: CASE EVENT DATE: 2016
